FAERS Safety Report 8818147 (Version 2)
Quarter: 2012Q4

REPORT INFORMATION
  Report Type: 
  Country: PT (occurrence: PT)
  Receive Date: 20121001
  Receipt Date: 20121018
  Transmission Date: 20130627
  Serious: Yes (Hospitalization)
  Sender: FDA-Public Use
  Company Number: PT-BAXTER-2012BAX017426

PATIENT
  Age: 46 Year
  Sex: Female

DRUGS (7)
  1. ENDOXAN [Suspect]
     Indication: VASCULITIS
     Dosage: 0.7 G/M2
  2. PREDNISOLONE [Suspect]
     Indication: VASCULITIS
  3. AMIODARONE [Concomitant]
     Indication: HEART FAILURE
  4. AZATHIOPRINE [Concomitant]
     Indication: HEART FAILURE
  5. STRONTIUM RANELATE [Concomitant]
     Indication: HEART FAILURE
  6. CALCIUM CARBONATE [Concomitant]
     Indication: HEART FAILURE
  7. COLECALCIFEROL [Concomitant]
     Indication: HEART FAILURE

REACTIONS (4)
  - Pyrexia [Unknown]
  - Leukocytosis [Unknown]
  - Interstitial lung disease [Unknown]
  - Pneumonia [Unknown]
